FAERS Safety Report 9568538 (Version 1)
Quarter: 2013Q3

REPORT INFORMATION
  Report Type: Spontaneous
  Country: US (occurrence: US)
  Receive Date: 20130930
  Receipt Date: 20130930
  Transmission Date: 20140515
  Serious: No
  Sender: FDA-Public Use
  Company Number: US-AMGEN-USASP2013062532

PATIENT
  Age: 29 Year
  Sex: Male

DRUGS (1)
  1. ENBREL [Suspect]
     Indication: ARTHRITIS REACTIVE
     Dosage: 50 MG, 2 TIMES/WK
     Route: 065
     Dates: start: 20090101

REACTIONS (4)
  - Pain [Recovered/Resolved]
  - Pain in extremity [Recovered/Resolved]
  - Arthralgia [Unknown]
  - Therapeutic response decreased [Recovered/Resolved]
